FAERS Safety Report 25706108 (Version 1)
Quarter: 2025Q3

REPORT INFORMATION
  Report Type: Spontaneous
  Country: EU (occurrence: EU)
  Receive Date: 20250820
  Receipt Date: 20250820
  Transmission Date: 20251021
  Serious: Yes (Other)
  Sender: IDORSIA PHARMACEUTICALS
  Company Number: EU-DCGMA-25205636

PATIENT
  Age: 58 Year
  Sex: Male
  Weight: 72 kg

DRUGS (2)
  1. QUVIVIQ [Interacting]
     Active Substance: DARIDOREXANT
     Indication: Insomnia
     Route: 048
  2. METHOCARBAMOL [Interacting]
     Active Substance: METHOCARBAMOL
     Indication: Muscle tightness
     Route: 048

REACTIONS (4)
  - Bradypnoea [Recovered/Resolved]
  - Sleep paralysis [Recovered/Resolved]
  - Labelled drug-drug interaction issue [Unknown]
  - Drug interaction [Unknown]

NARRATIVE: CASE EVENT DATE: 20250722
